FAERS Safety Report 19893648 (Version 16)
Quarter: 2025Q1

REPORT INFORMATION
  Report Type: Report from Study
  Country: CO (occurrence: None)
  Receive Date: 20210928
  Receipt Date: 20250319
  Transmission Date: 20250408
  Serious: Yes (Hospitalization, Other)
  Sender: INCYTE
  Company Number: CO-002147023-NVSC2021CO177029

PATIENT
  Age: 74 Year

DRUGS (24)
  1. RUXOLITINIB [Suspect]
     Active Substance: RUXOLITINIB
     Indication: Polycythaemia vera
     Dosage: 20 MG, BID
  2. RUXOLITINIB [Suspect]
     Active Substance: RUXOLITINIB
     Dosage: 10 MG, QD (1 OF 10 MG)
  3. RUXOLITINIB [Suspect]
     Active Substance: RUXOLITINIB
     Dosage: 2 DF (20 MG), QD
  4. RUXOLITINIB [Suspect]
     Active Substance: RUXOLITINIB
     Dosage: 10 MG, Q12H
  5. RUXOLITINIB [Suspect]
     Active Substance: RUXOLITINIB
  6. RUXOLITINIB [Suspect]
     Active Substance: RUXOLITINIB
  7. RUXOLITINIB [Suspect]
     Active Substance: RUXOLITINIB
  8. RUXOLITINIB [Suspect]
     Active Substance: RUXOLITINIB
     Dosage: 10 MG, QD
  9. RUXOLITINIB [Suspect]
     Active Substance: RUXOLITINIB
  10. RUXOLITINIB [Suspect]
     Active Substance: RUXOLITINIB
  11. RUXOLITINIB [Suspect]
     Active Substance: RUXOLITINIB
     Dosage: 10 MG, QD
  12. RUXOLITINIB [Suspect]
     Active Substance: RUXOLITINIB
     Dosage: 10 MG, Q12H
  13. RUXOLITINIB [Suspect]
     Active Substance: RUXOLITINIB
     Dosage: 5 MG, Q12H
  14. RUXOLITINIB [Suspect]
     Active Substance: RUXOLITINIB
  15. RUXOLITINIB [Suspect]
     Active Substance: RUXOLITINIB
  16. RUXOLITINIB [Suspect]
     Active Substance: RUXOLITINIB
     Dosage: 5 MG, QD
  17. RUXOLITINIB [Suspect]
     Active Substance: RUXOLITINIB
  18. RUXOLITINIB [Suspect]
     Active Substance: RUXOLITINIB
  19. RUXOLITINIB [Suspect]
     Active Substance: RUXOLITINIB
     Dosage: 5 MG, Q12H
  20. RUXOLITINIB [Suspect]
     Active Substance: RUXOLITINIB
     Dosage: 20 MG, QD, (10 MG EVERY 12 HOURS)
  21. RUXOLITINIB [Suspect]
     Active Substance: RUXOLITINIB
     Dosage: 20 MG, BID (PATIENT?S WIFE WAS GIVING HIM ONE TABLET ONE DAY AND ANOTHER THE NEXT DAY)
     Route: 065
  22. RUXOLITINIB [Suspect]
     Active Substance: RUXOLITINIB
     Dosage: 10 MG, Q12H
  23. RUXOLITINIB [Suspect]
     Active Substance: RUXOLITINIB
     Dosage: 10 MG, QD
     Route: 065
  24. INSULIN NOS [Concomitant]
     Active Substance: INSULIN NOS
     Indication: Diabetes mellitus

REACTIONS (22)
  - Peripheral swelling [Unknown]
  - Gait disturbance [Unknown]
  - Diabetic metabolic decompensation [Unknown]
  - Incorrect dose administered [Unknown]
  - Pyrexia [Recovered/Resolved]
  - Malaise [Unknown]
  - Haemoglobin abnormal [Unknown]
  - Blood creatinine increased [Unknown]
  - Haemoglobin increased [Unknown]
  - Infection [Unknown]
  - Inflammation [Unknown]
  - Application site pain [Recovered/Resolved]
  - Pain in extremity [Recovered/Resolved]
  - Product use issue [Unknown]
  - Product supply issue [Unknown]
  - Application site discolouration [Unknown]
  - Wrong technique in product usage process [Unknown]
  - Laboratory test abnormal [Unknown]
  - Full blood count increased [Unknown]
  - Platelet count increased [Unknown]
  - Asthenia [Unknown]
  - Illness [Unknown]
